FAERS Safety Report 19399743 (Version 2)
Quarter: 2021Q2

REPORT INFORMATION
  Report Type: Spontaneous
  Country: US (occurrence: US)
  Receive Date: 20210610
  Receipt Date: 20210625
  Transmission Date: 20210717
  Serious: No
  Sender: FDA-Public Use
  Company Number: US-UNITED THERAPEUTICS-UNT-2021-010558

PATIENT
  Age: 21 Year
  Sex: Female

DRUGS (2)
  1. REMODULIN [Suspect]
     Active Substance: TREPROSTINIL
     Dosage: 0.0578 ?G/KG, CONTINUING (AT AN INFUSION RATE OF 0.044 ML/HR)
     Route: 058
  2. REMODULIN [Suspect]
     Active Substance: TREPROSTINIL
     Indication: PULMONARY ARTERIAL HYPERTENSION
     Dosage: UNK, CONTINUING
     Route: 058
     Dates: start: 20210401

REACTIONS (4)
  - Crying [Unknown]
  - Infusion site pain [Not Recovered/Not Resolved]
  - Screaming [Unknown]
  - Mood altered [Unknown]

NARRATIVE: CASE EVENT DATE: 20210605
